FAERS Safety Report 4285289-4 (Version None)
Quarter: 2004Q1

REPORT INFORMATION
  Report Type: 
  Country: None (occurrence: None)
  Receive Date: 20040204
  Receipt Date: 20040123
  Transmission Date: 20041129
  Serious: Yes (Hospitalization)
  Sender: FDA-Public Use
  Company Number: PHBS2004NL01157

PATIENT
  Sex: Female

DRUGS (3)
  1. MELLERIL [Suspect]
     Dosage: 25 MG/D
     Route: 048
  2. AMITRIPTYLINE [Concomitant]
     Dosage: 50 MG/D
     Route: 065
  3. LORMETAZEPAM [Concomitant]
     Dosage: 1 MG/D
     Route: 065

REACTIONS (2)
  - HEPATITIS CHOLESTATIC [None]
  - LIVER FUNCTION TEST ABNORMAL [None]
